FAERS Safety Report 4951778-X (Version None)
Quarter: 2006Q1

REPORT INFORMATION
  Report Type: 
  Country: None (occurrence: None)
  Receive Date: 20060322
  Receipt Date: 20060322
  Transmission Date: 20060701
  Serious: Yes (Hospitalization)
  Sender: FDA-Public Use
  Company Number: None

PATIENT
  Age: 73 Year
  Sex: Male

DRUGS (6)
  1. THALIDOMIDE 200 MG [Suspect]
     Indication: MULTIPLE MYELOMA
     Dosage: 200 MG DAILY PO [MONTH]
     Route: 048
  2. ZOCOR [Concomitant]
  3. GLIPIZIDE [Concomitant]
  4. NIFEDIPINE [Concomitant]
  5. DIOVAN [Concomitant]
  6. ALBUTEROL [Concomitant]

REACTIONS (2)
  - BRADYCARDIA [None]
  - DIZZINESS [None]
